FAERS Safety Report 20362447 (Version 4)
Quarter: 2022Q3

REPORT INFORMATION
  Report Type: Report from Study
  Country: CN (occurrence: CN)
  Receive Date: 20220121
  Receipt Date: 20220804
  Transmission Date: 20221027
  Serious: Yes (Other)
  Sender: FDA-Public Use
  Company Number: CN-BoehringerIngelheim-2021-BI-139569

PATIENT
  Age: 53 Year
  Sex: Male
  Weight: 69 kg

DRUGS (13)
  1. TENECTEPLASE [Suspect]
     Active Substance: TENECTEPLASE
     Indication: Ischaemic stroke
     Dosage: FOA: CONCENTRATE AND SOLVENT FOR INFECTION, MOST RECENT DOSE ON 13/OCT/2021
     Route: 042
     Dates: start: 20211013
  2. TENECTEPLASE [Suspect]
     Active Substance: TENECTEPLASE
     Indication: Cerebral infarction
  3. MANNITOL [Suspect]
     Active Substance: MANNITOL
     Indication: Product used for unknown indication
     Dosage: MOST RECENT DOSE ON 26/OCT/2021
     Route: 065
     Dates: start: 20211015
  4. CLOPIDOGREL BISULFATE [Concomitant]
     Active Substance: CLOPIDOGREL BISULFATE
     Indication: Product used for unknown indication
     Dates: start: 20211015, end: 20211022
  5. BUTYLPHTHALIDE [Concomitant]
     Active Substance: BUTYLPHTHALIDE
     Indication: Product used for unknown indication
     Dates: start: 20211015, end: 20211030
  6. SACUBITRIL\VALSARTAN [Concomitant]
     Active Substance: SACUBITRIL\VALSARTAN
     Indication: Product used for unknown indication
     Dates: start: 20211016, end: 20211030
  7. POTASSIUM CITRATE [Concomitant]
     Active Substance: POTASSIUM CITRATE
     Indication: Product used for unknown indication
     Dates: start: 20211017, end: 20211030
  8. EDARAVONE [Concomitant]
     Active Substance: EDARAVONE
     Indication: Product used for unknown indication
     Dates: start: 20211014, end: 20211030
  9. ALBUMIN HUMAN [Concomitant]
     Active Substance: ALBUMIN HUMAN
     Indication: Product used for unknown indication
     Dates: start: 20211016, end: 20211026
  10. ATORVASTATIN CALCIUM [Concomitant]
     Active Substance: ATORVASTATIN CALCIUM
     Indication: Product used for unknown indication
     Dates: start: 20211014, end: 20211028
  11. TORSEMIDE [Concomitant]
     Active Substance: TORSEMIDE
     Indication: Product used for unknown indication
     Dosage: ROA:INJECTION
     Dates: start: 20211015, end: 20211026
  12. ESZOPICLONE [Concomitant]
     Active Substance: ESZOPICLONE
     Indication: Product used for unknown indication
     Dates: start: 20211014, end: 20211014
  13. ESZOPICLONE [Concomitant]
     Active Substance: ESZOPICLONE
     Dates: start: 20211018, end: 20211018

REACTIONS (2)
  - Haemorrhagic transformation stroke [Not Recovered/Not Resolved]
  - Cerebral infarction [Not Recovered/Not Resolved]

NARRATIVE: CASE EVENT DATE: 20211018
